FAERS Safety Report 6124106-4 (Version None)
Quarter: 2009Q1

REPORT INFORMATION
  Report Type: 
  Country: None (occurrence: None)
  Receive Date: 20090319
  Receipt Date: 20090313
  Transmission Date: 20090719
  Serious: Yes (Death)
  Sender: FDA-Public Use
  Company Number: JP-SANOFI-SYNTHELABO-A01200902714

PATIENT
  Sex: Male
  Weight: 79 kg

DRUGS (6)
  1. FRESH FROZEN PLASMA [Concomitant]
     Route: 042
     Dates: start: 20090224, end: 20090224
  2. PLATELETS [Concomitant]
     Route: 042
     Dates: start: 20090224, end: 20090224
  3. AVASTIN [Suspect]
     Route: 041
     Dates: start: 20090202, end: 20090202
  4. FLUOROURACIL [Suspect]
     Dosage: BOLUS THEN 4650MG/BODY/D1-2 (2657.1MG/M2/D1-2) AS CONTINUOUS INFUSION
     Route: 042
     Dates: start: 20090202, end: 20090202
  5. ISOVORIN [Suspect]
     Route: 041
     Dates: start: 20090202, end: 20090202
  6. ELPLAT [Suspect]
     Indication: COLON CANCER
     Route: 041
     Dates: start: 20090202, end: 20090202

REACTIONS (6)
  - CEREBRAL INFARCTION [None]
  - EPISTAXIS [None]
  - INTERSTITIAL LUNG DISEASE [None]
  - PROTEIN URINE [None]
  - RESPIRATORY DISTRESS [None]
  - RESPIRATORY FAILURE [None]
